FAERS Safety Report 24276597 (Version 1)
Quarter: 2024Q3

REPORT INFORMATION
  Report Type: Spontaneous
  Country: PL (occurrence: PL)
  Receive Date: 20240903
  Receipt Date: 20240903
  Transmission Date: 20241017
  Serious: Yes (Other)
  Sender: ACCORD
  Company Number: PL-EMA-DD-20240814-7482661-093405

PATIENT
  Age: 22 Year
  Sex: Female

DRUGS (12)
  1. MYCOPHENOLATE MOFETIL [Suspect]
     Active Substance: MYCOPHENOLATE MOFETIL
     Indication: Lupus nephritis
     Dosage: 2 G, QD
  2. AZATHIOPRINE [Suspect]
     Active Substance: AZATHIOPRINE
     Indication: Systemic lupus erythematosus
  3. CYCLOPHOSPHAMIDE [Suspect]
     Active Substance: CYCLOPHOSPHAMIDE
     Indication: Lupus nephritis
  4. METHYLPREDNISOLONE [Suspect]
     Active Substance: METHYLPREDNISOLONE
     Indication: Lupus nephritis
  5. PREDNISONE [Suspect]
     Active Substance: PREDNISONE
     Indication: Systemic lupus erythematosus
  6. CYCLOPHOSPHAMIDE [Suspect]
     Active Substance: CYCLOPHOSPHAMIDE
     Indication: Systemic lupus erythematosus
  7. AZATHIOPRINE [Suspect]
     Active Substance: AZATHIOPRINE
     Indication: Lupus nephritis
  8. PREDNISONE [Suspect]
     Active Substance: PREDNISONE
     Indication: Lupus nephritis
  9. MYCOPHENOLATE MOFETIL [Suspect]
     Active Substance: MYCOPHENOLATE MOFETIL
     Indication: Systemic lupus erythematosus
     Dosage: 1 G, QD
  10. MYCOPHENOLATE MOFETIL [Suspect]
     Active Substance: MYCOPHENOLATE MOFETIL
     Indication: Lupus nephritis
     Dosage: 500 MG, 2X/DAY
     Dates: start: 201302
  11. METHYLPREDNISOLONE [Suspect]
     Active Substance: METHYLPREDNISOLONE
     Indication: Systemic lupus erythematosus
  12. MYCOPHENOLATE MOFETIL [Suspect]
     Active Substance: MYCOPHENOLATE MOFETIL
     Dosage: 250 MG, 2X/DAY
     Dates: start: 201303

REACTIONS (4)
  - Nephrotic syndrome [Unknown]
  - Lymphopenia [Recovering/Resolving]
  - Condition aggravated [Unknown]
  - Disease recurrence [Unknown]
